FAERS Safety Report 12778929 (Version 1)
Quarter: 2016Q3

REPORT INFORMATION
  Report Type: Spontaneous
  Country: US (occurrence: US)
  Receive Date: 20160926
  Receipt Date: 20160926
  Transmission Date: 20161109
  Serious: No
  Sender: FDA-Public Use
  Company Number: US-JAZZ-2016-US-011118

PATIENT
  Age: 24 Year
  Sex: Male
  Weight: 53.52 kg

DRUGS (25)
  1. DESOXYN [Concomitant]
     Active Substance: METHAMPHETAMINE HYDROCHLORIDE
  2. HYDROMORPHONE [Concomitant]
     Active Substance: HYDROMORPHONE
     Indication: CENTRAL PAIN SYNDROME
  3. ALPRAZOLAM ER [Concomitant]
     Active Substance: ALPRAZOLAM
     Indication: NEUROPATHY PERIPHERAL
  4. XYREM [Suspect]
     Active Substance: SODIUM OXYBATE
     Indication: SOMNOLENCE
  5. ACTHAR [Suspect]
     Active Substance: CORTICOTROPIN
     Indication: BLOOD CORTISOL DECREASED
  6. DILAUDID [Concomitant]
     Active Substance: HYDROMORPHONE HYDROCHLORIDE
  7. RETIN-A [Concomitant]
     Active Substance: TRETINOIN
  8. ACTHAR [Suspect]
     Active Substance: CORTICOTROPIN
     Indication: BLOOD CORTICOTROPHIN DECREASED
     Dosage: UNK
     Dates: start: 20160606
  9. MIRALAX [Concomitant]
     Active Substance: POLYETHYLENE GLYCOL 3350
  10. RELISTOR [Concomitant]
     Active Substance: METHYLNALTREXONE BROMIDE
     Indication: ABDOMINAL DISCOMFORT
  11. VITAMIN D3 [Concomitant]
     Active Substance: CHOLECALCIFEROL
  12. XYREM [Suspect]
     Active Substance: SODIUM OXYBATE
     Indication: CATAPLEXY
  13. NARCAN [Concomitant]
     Active Substance: NALOXONE HYDROCHLORIDE
  14. HYDROMORPHONE [Concomitant]
     Active Substance: HYDROMORPHONE
     Indication: EHLERS-DANLOS SYNDROME
  15. VITAMIN D [Concomitant]
     Active Substance: CHOLECALCIFEROL
  16. MENTAX [Concomitant]
     Active Substance: BUTENAFINE HYDROCHLORIDE
  17. XYREM [Suspect]
     Active Substance: SODIUM OXYBATE
     Indication: NARCOLEPSY
     Dosage: 1 G, BID
     Route: 048
     Dates: start: 20160604
  18. ALPRAZOLAM ER [Concomitant]
     Active Substance: ALPRAZOLAM
     Indication: ANXIETY
  19. MEDROL [Concomitant]
     Active Substance: METHYLPREDNISOLONE
  20. METANX [Concomitant]
     Active Substance: LEVOMEFOLATE CALCIUM\METHYLCOBALAMIN\PYRIDOXAL PHOSPHATE ANHYDROUS
     Indication: VITAMIN B12 DEFICIENCY
  21. FOCALIN [Concomitant]
     Active Substance: DEXMETHYLPHENIDATE HYDROCHLORIDE
  22. NAMENDA [Concomitant]
     Active Substance: MEMANTINE HYDROCHLORIDE
  23. XANAX XR [Concomitant]
     Active Substance: ALPRAZOLAM
  24. LINZESS [Concomitant]
     Active Substance: LINACLOTIDE
     Indication: ABDOMINAL DISCOMFORT
  25. VITAMIN A [Concomitant]
     Active Substance: VITAMIN A

REACTIONS (4)
  - Swelling [Recovering/Resolving]
  - Weight decreased [Not Recovered/Not Resolved]
  - Fatigue [Not Recovered/Not Resolved]
  - Abdominal distension [Unknown]

NARRATIVE: CASE EVENT DATE: 201606
